FAERS Safety Report 7771275-6 (Version None)
Quarter: 2011Q3

REPORT INFORMATION
  Report Type: 
  Country: None (occurrence: None)
  Receive Date: 20110922
  Receipt Date: 20110920
  Transmission Date: 20111222
  Serious: Yes (Other)
  Sender: FDA-Public Use
  Company Number: US-PFIZER INC-2011210127

PATIENT
  Sex: Male

DRUGS (2)
  1. LYRICA [Suspect]
     Indication: PERONEAL MUSCULAR ATROPHY
     Dosage: UNK
  2. NEURONTIN [Suspect]
     Indication: PERONEAL MUSCULAR ATROPHY
     Dosage: UNK

REACTIONS (8)
  - NEURALGIA [None]
  - NAUSEA [None]
  - PAIN IN EXTREMITY [None]
  - INSOMNIA [None]
  - LIGAMENT SPRAIN [None]
  - OEDEMA PERIPHERAL [None]
  - DECREASED APPETITE [None]
  - HYPERHIDROSIS [None]
